FAERS Safety Report 20850413 (Version 1)
Quarter: 2022Q2

REPORT INFORMATION
  Report Type: Spontaneous
  Country: US (occurrence: None)
  Receive Date: 20220518
  Receipt Date: 20220518
  Transmission Date: 20220721
  Serious: No
  Sender: FDA-Public Use
  Company Number: None

PATIENT
  Age: 18 Year
  Sex: Male
  Weight: 65.25 kg

DRUGS (1)
  1. CHLORHEXIDINE GLUCONATE 0.12% ORAL RINSE [Suspect]
     Active Substance: CHLORHEXIDINE GLUCONATE
     Indication: Infection prophylaxis
     Dosage: FREQUENCY : TWICE A DAY;?OTHER ROUTE : ORAL RINSE;?
     Route: 050
     Dates: start: 20220514, end: 20220517

REACTIONS (1)
  - Drug hypersensitivity [None]

NARRATIVE: CASE EVENT DATE: 20220516
